FAERS Safety Report 10960593 (Version 3)
Quarter: 2015Q2

REPORT INFORMATION
  Report Type: Spontaneous
  Country: US (occurrence: US)
  Receive Date: 20150327
  Receipt Date: 20150409
  Transmission Date: 20150821
  Serious: No
  Sender: FDA-Public Use
  Company Number: US-TEVA-549304USA

PATIENT
  Age: 69 Year
  Sex: Male
  Weight: 72.64 kg

DRUGS (5)
  1. CARBIDOPA AND LEVODOPA [Suspect]
     Active Substance: CARBIDOPA\LEVODOPA
     Indication: PRODUCT USED FOR UNKNOWN INDICATION
     Route: 065
  2. REQUIP [Concomitant]
     Active Substance: ROPINIROLE HYDROCHLORIDE
  3. SLOW-MAG [Concomitant]
     Active Substance: MAGNESIUM CHLORIDE
  4. AZILECT [Suspect]
     Active Substance: RASAGILINE MESYLATE
     Route: 048
     Dates: start: 2010, end: 20150312
  5. AZILECT [Suspect]
     Active Substance: RASAGILINE MESYLATE
     Indication: PARKINSON^S DISEASE
     Route: 048
     Dates: start: 201006, end: 20150312

REACTIONS (7)
  - Nervousness [Unknown]
  - Drug effect increased [Unknown]
  - Drug ineffective [Unknown]
  - Intentional underdose [Unknown]
  - Drug administration error [Unknown]
  - Confusional state [Unknown]
  - Muscle spasms [Unknown]

NARRATIVE: CASE EVENT DATE: 201006
